FAERS Safety Report 12074867 (Version 3)
Quarter: 2016Q4

REPORT INFORMATION
  Report Type: Spontaneous
  Country: US (occurrence: US)
  Receive Date: 20160212
  Receipt Date: 20161018
  Transmission Date: 20170206
  Serious: Yes (Hospitalization, Other)
  Sender: FDA-Public Use
  Company Number: US-ENDO PHARMACEUTICALS INC.-2016-000977

PATIENT
  Sex: Female
  Weight: 103.51 kg

DRUGS (10)
  1. CELLCEPT [Suspect]
     Active Substance: MYCOPHENOLATE MOFETIL\MYCOPHENOLATE MOFETIL HYDROCHLORIDE
     Indication: RENAL TRANSPLANT
     Route: 048
     Dates: start: 20050426, end: 20110311
  2. MYCOPHENOLATE MOFETIL CAPSULES [Suspect]
     Active Substance: MYCOPHENOLATE MOFETIL
     Route: 048
  3. SIROLIMUS. [Suspect]
     Active Substance: SIROLIMUS
     Route: 048
  4. RAPAMUNE [Suspect]
     Active Substance: SIROLIMUS
     Indication: RENAL TRANSPLANT
     Route: 048
     Dates: start: 20070324, end: 2011
  5. PREDNISONE TABLETS 5MG [Suspect]
     Active Substance: PREDNISONE
     Indication: RENAL TRANSPLANT
     Route: 048
     Dates: start: 2005
  6. PREDNISONE TABLETS 5MG [Suspect]
     Active Substance: PREDNISONE
     Indication: STEROID THERAPY
     Dosage: DECREASED
     Route: 048
  7. MYCOPHENOLATE MOFETIL CAPSULES [Suspect]
     Active Substance: MYCOPHENOLATE MOFETIL
     Indication: RENAL TRANSPLANT
     Route: 048
     Dates: start: 20050426, end: 20110311
  8. RAPAMUNE [Suspect]
     Active Substance: SIROLIMUS
     Route: 048
  9. CELLCEPT [Suspect]
     Active Substance: MYCOPHENOLATE MOFETIL\MYCOPHENOLATE MOFETIL HYDROCHLORIDE
     Route: 048
  10. SIROLIMUS. [Suspect]
     Active Substance: SIROLIMUS
     Indication: RENAL TRANSPLANT
     Route: 048
     Dates: start: 20070324, end: 2011

REACTIONS (10)
  - Aphasia [Recovering/Resolving]
  - Malaise [Recovered/Resolved]
  - Memory impairment [Recovering/Resolving]
  - Decreased appetite [Recovering/Resolving]
  - Confusional state [Recovered/Resolved]
  - Epistaxis [Recovered/Resolved]
  - Seizure [Recovering/Resolving]
  - Central nervous system lesion [Recovered/Resolved]
  - Cerebral disorder [Not Recovered/Not Resolved]
  - Mouth haemorrhage [Recovered/Resolved]

NARRATIVE: CASE EVENT DATE: 2011
